FAERS Safety Report 20803180 (Version 2)
Quarter: 2022Q2

REPORT INFORMATION
  Report Type: Spontaneous
  Country: DK (occurrence: DK)
  Receive Date: 20220509
  Receipt Date: 20220512
  Transmission Date: 20220721
  Serious: Yes (Hospitalization, Other)
  Sender: FDA-Public Use
  Company Number: DK-PFM-2022-04099

PATIENT
  Age: 32 Year
  Sex: Male
  Weight: 72 kg

DRUGS (4)
  1. BRAFTOVI [Suspect]
     Active Substance: ENCORAFENIB
     Indication: Colon cancer metastatic
     Dosage: 300 MG, QD (1/DAY)
     Route: 048
     Dates: start: 20220421
  2. BRAFTOVI [Suspect]
     Active Substance: ENCORAFENIB
     Indication: BRAF gene mutation
  3. CETUXIMAB [Concomitant]
     Active Substance: CETUXIMAB
     Indication: Colon cancer metastatic
     Dosage: 500 MG/CM2 (950 MG EVERY SECOND WEEK)
     Route: 042
     Dates: start: 20220421
  4. CETUXIMAB [Concomitant]
     Active Substance: CETUXIMAB
     Indication: BRAF gene mutation

REACTIONS (3)
  - Cholecystitis [Unknown]
  - Pyrexia [Unknown]
  - Abdominal pain [Unknown]

NARRATIVE: CASE EVENT DATE: 20220428
